FAERS Safety Report 4556597-4 (Version None)
Quarter: 2005Q1

REPORT INFORMATION
  Report Type: 
  Country: None (occurrence: None)
  Receive Date: 20050114
  Receipt Date: 20050107
  Transmission Date: 20050727
  Serious: Yes (Other)
  Sender: FDA-Public Use
  Company Number: FRWYE325710JAN05

PATIENT
  Age: 49 Year
  Sex: Female

DRUGS (4)
  1. RAPAMUNE [Suspect]
     Indication: PROPHYLAXIS AGAINST TRANSPLANT REJECTION
     Dosage: 3 MG 1X PER 1 DAY
     Route: 048
     Dates: start: 20030902
  2. AZATHIOPRINE [Suspect]
     Indication: PROPHYLAXIS AGAINST TRANSPLANT REJECTION
     Dosage: 0.05 G 1X PER 1 DAY
     Route: 048
     Dates: start: 19930221, end: 20040830
  3. TENORMIN [Suspect]
     Dosage: 50 MG 1X PER 1 DAY
     Route: 048
     Dates: end: 20031222
  4. TENORMIN [Suspect]
     Dosage: 50 MG 1X PER 1 DAY
     Route: 048
     Dates: start: 20040315

REACTIONS (5)
  - CONDITION AGGRAVATED [None]
  - CYTOLYTIC HEPATITIS [None]
  - DRUG INEFFECTIVE [None]
  - HEPATITIS C [None]
  - PROTEINURIA [None]
